FAERS Safety Report 5703281-7 (Version None)
Quarter: 2008Q2

REPORT INFORMATION
  Report Type: 
  Country: None (occurrence: None)
  Receive Date: 20080411
  Receipt Date: 20080401
  Transmission Date: 20081010
  Serious: Yes (Death, Hospitalization)
  Sender: FDA-Public Use
  Company Number: MX-ROCHE-546878

PATIENT
  Sex: Male
  Weight: 50 kg

DRUGS (13)
  1. VALCYTE [Suspect]
     Indication: CYTOMEGALOVIRUS INFECTION
     Route: 048
     Dates: start: 20060424
  2. VALCYTE [Suspect]
     Route: 048
     Dates: start: 20070118
  3. VALCYTE [Suspect]
     Route: 048
     Dates: start: 20070208
  4. VALCYTE [Suspect]
     Route: 048
     Dates: end: 20071011
  5. VALCYTE [Suspect]
     Route: 048
     Dates: start: 20071217, end: 20080122
  6. 1 CONCOMITANT DRUG [Concomitant]
     Indication: IMMUNOSUPPRESSION
     Dosage: DRUG NAME REPORTED: MOFENOLIC ACID.
     Route: 048
     Dates: start: 20060424, end: 20080118
  7. PREDNISONA [Concomitant]
     Indication: IMMUNOSUPPRESSION
     Dosage: DOSAGE REPORTED: DAILY
     Route: 048
     Dates: start: 20060713, end: 20080125
  8. TACROLIMUS [Concomitant]
     Indication: IMMUNOSUPPRESSION
     Dosage: DOSAGE: DAILY
     Route: 048
     Dates: start: 20060424, end: 20080125
  9. METOPROLOL TARTRATE [Concomitant]
     Indication: HYPERTENSION
     Route: 048
     Dates: start: 20060424, end: 20080125
  10. OMEPRAZOLE [Concomitant]
     Indication: GASTRITIS
     Route: 048
     Dates: start: 20060424, end: 20080125
  11. 1 CONCOMITANT DRUG [Concomitant]
     Indication: HYPERTENSION
     Dosage: DOSAGE: QID, 4 TIMES DAILY DRUG REPORTED: HIDALACINE
     Route: 048
     Dates: start: 20060424, end: 20080125
  12. AMLODIPINO [Concomitant]
     Indication: HYPERTENSION
     Route: 048
     Dates: start: 20060424, end: 20080125
  13. AZATIOPRINA [Concomitant]
     Dates: start: 20070118, end: 20071219

REACTIONS (4)
  - BONE MARROW FAILURE [None]
  - CEREBROVASCULAR ACCIDENT [None]
  - LEUKOPENIA [None]
  - TRANSPLANT REJECTION [None]
